FAERS Safety Report 18340162 (Version 1)
Quarter: 2020Q4

REPORT INFORMATION
  Report Type: Spontaneous
  Country: US (occurrence: US)
  Receive Date: 20201002
  Receipt Date: 20201002
  Transmission Date: 20210113
  Serious: Yes (Disabling, Other)
  Sender: FDA-Public Use
  Company Number: US-PURDUE-USA-2020-0165222

PATIENT
  Sex: Male

DRUGS (3)
  1. OXYCODONE HCL CR TABLETS (SIMILAR TO NDA 22-272) [Suspect]
     Active Substance: OXYCODONE HYDROCHLORIDE
     Indication: PRODUCT USED FOR UNKNOWN INDICATION
     Dosage: UNK
     Route: 048
  2. OXYCODONE HCL TABLETS (RHODES 91-490) [Suspect]
     Active Substance: OXYCODONE HYDROCHLORIDE
     Indication: PRODUCT USED FOR UNKNOWN INDICATION
     Dosage: UNK
     Route: 048
  3. OXYCONTIN [Suspect]
     Active Substance: OXYCODONE HYDROCHLORIDE
     Indication: PRODUCT USED FOR UNKNOWN INDICATION
     Dosage: UNK
     Route: 048

REACTIONS (13)
  - Major depression [Unknown]
  - Pain threshold decreased [Unknown]
  - Balance disorder [Unknown]
  - Suicidal ideation [Unknown]
  - Confusional state [Unknown]
  - Personality change [Unknown]
  - Disturbance in attention [Unknown]
  - Drug dependence [Unknown]
  - Disability [Unknown]
  - Amnesia [Unknown]
  - Disturbance in social behaviour [Unknown]
  - Emotional distress [Unknown]
  - Irritability [Unknown]
